FAERS Safety Report 18443847 (Version 2)
Quarter: 2021Q1

REPORT INFORMATION
  Report Type: Spontaneous
  Country: US (occurrence: US)
  Receive Date: 20201030
  Receipt Date: 20210215
  Transmission Date: 20210419
  Serious: No
  Sender: FDA-Public Use
  Company Number: US-AKCEA THERAPEUTICS-2020IS001304

PATIENT
  Age: 64 Year
  Sex: Female

DRUGS (6)
  1. CARVEDILOL. [Concomitant]
     Active Substance: CARVEDILOL
     Route: 065
  2. TEGSEDI [Suspect]
     Active Substance: INOTERSEN SODIUM
     Indication: HEREDITARY NEUROPATHIC AMYLOIDOSIS
     Route: 058
     Dates: start: 20200718
  3. TEGSEDI [Suspect]
     Active Substance: INOTERSEN SODIUM
     Route: 058
  4. TEGSEDI [Suspect]
     Active Substance: INOTERSEN SODIUM
     Route: 058
     Dates: start: 20200319
  5. DIFLUNISAL. [Concomitant]
     Active Substance: DIFLUNISAL
     Route: 065
  6. ISSD (INTEGRATED SYRINGE SAFETY DEVICE) [Suspect]
     Active Substance: DEVICE

REACTIONS (10)
  - Renal function test abnormal [Unknown]
  - Blood test abnormal [Unknown]
  - Pain in extremity [Unknown]
  - Bacterial test positive [Not Recovered/Not Resolved]
  - Proteinuria [Unknown]
  - Creatinine urine abnormal [Unknown]
  - Nitrite urine present [Not Recovered/Not Resolved]
  - Fatigue [Unknown]
  - Back pain [Unknown]
  - Urine protein/creatinine ratio increased [Not Recovered/Not Resolved]

NARRATIVE: CASE EVENT DATE: 20200718
